FAERS Safety Report 10247289 (Version 1)
Quarter: 2014Q2

REPORT INFORMATION
  Report Type: Spontaneous
  Country: CH (occurrence: CH)
  Receive Date: 20140619
  Receipt Date: 20140619
  Transmission Date: 20141212
  Serious: Yes (Hospitalization)
  Sender: FDA-Public Use
  Company Number: CH-GLAXOSMITHKLINE-B1005278A

PATIENT
  Age: 79 Year
  Sex: Female

DRUGS (12)
  1. REQUIP-MODUTAB [Suspect]
     Indication: PARKINSON^S DISEASE
     Dosage: 8MG PER DAY
     Route: 048
     Dates: start: 201402
  2. COMTAN [Suspect]
     Indication: PARKINSON^S DISEASE
     Dosage: 200MG TWICE PER DAY
     Route: 048
     Dates: start: 20140215, end: 201402
  3. LEPONEX [Suspect]
     Indication: PRODUCT USED FOR UNKNOWN INDICATION
     Dosage: 25MG PER DAY
     Route: 048
  4. QUILONORM RETARD [Suspect]
     Indication: DEPRESSION
     Dosage: 450MG PER DAY
     Route: 048
     Dates: end: 20140217
  5. MADOPAR [Suspect]
     Indication: PARKINSON^S DISEASE
     Dosage: 1CAP PER DAY
     Route: 048
     Dates: start: 20140215
  6. EXELON [Suspect]
     Indication: DEMENTIA
     Dosage: 5MG PER DAY
     Route: 062
  7. TIAPRIDAL [Suspect]
     Indication: PRODUCT USED FOR UNKNOWN INDICATION
     Route: 048
     Dates: end: 20140217
  8. SINEMET [Concomitant]
     Route: 065
  9. ESOMEPRAZOLE [Concomitant]
  10. SPASMO URGENIN [Concomitant]
  11. MOVICOL [Concomitant]
  12. NITRODERM [Concomitant]

REACTIONS (7)
  - Delirium [Recovered/Resolved]
  - Agitation [Recovered/Resolved]
  - Confusional state [Recovered/Resolved]
  - Disorientation [Recovered/Resolved]
  - Hallucination [Recovered/Resolved]
  - Antipsychotic drug level above therapeutic [Recovered/Resolved]
  - Labelled drug-disease interaction medication error [Unknown]
